FAERS Safety Report 19400847 (Version 1)
Quarter: 2021Q2

REPORT INFORMATION
  Report Type: Spontaneous
  Country: US (occurrence: US)
  Receive Date: 20210610
  Receipt Date: 20210610
  Transmission Date: 20210717
  Serious: No
  Sender: FDA-Public Use
  Company Number: US-SA-2021SA187850

PATIENT
  Sex: Male
  Weight: 127 kg

DRUGS (8)
  1. PANTOPRAZOLE SODIUM. [Concomitant]
     Active Substance: PANTOPRAZOLE SODIUM
  2. VITAMIN B12 [Concomitant]
     Active Substance: CYANOCOBALAMIN
  3. DUPIXENT [Suspect]
     Active Substance: DUPILUMAB
     Indication: DERMATITIS ATOPIC
     Dosage: 300 MG, QW
     Route: 058
     Dates: start: 2016
  4. MODERNA COVID?19 VACCINE [Concomitant]
     Active Substance: CX-024414
  5. MAGNESIUM [Concomitant]
     Active Substance: MAGNESIUM
  6. SYNJARDY XR [Concomitant]
     Active Substance: EMPAGLIFLOZIN\METFORMIN HYDROCHLORIDE
     Indication: TYPE 2 DIABETES MELLITUS
  7. CLOBETASOL PROPIONATE. [Concomitant]
     Active Substance: CLOBETASOL PROPIONATE
  8. ATORVASTATIN CALCIUM. [Concomitant]
     Active Substance: ATORVASTATIN CALCIUM

REACTIONS (14)
  - Skin lesion [Unknown]
  - Muscle spasms [Unknown]
  - Skin burning sensation [Unknown]
  - Skin haemorrhage [Unknown]
  - Sleep disorder [Unknown]
  - Depressed mood [Unknown]
  - Dermatitis atopic [Unknown]
  - Dry skin [Unknown]
  - Skin exfoliation [Unknown]
  - Off label use [Unknown]
  - Pruritus [Unknown]
  - Dermatitis [Unknown]
  - Skin swelling [Unknown]
  - Product dose omission issue [Unknown]

NARRATIVE: CASE EVENT DATE: 2021
